FAERS Safety Report 9348287 (Version 7)
Quarter: 2017Q3

REPORT INFORMATION
  Report Type: Report from Study
  Country: IT (occurrence: IT)
  Receive Date: 20130614
  Receipt Date: 20170907
  Transmission Date: 20171128
  Serious: Yes (Hospitalization, Other)
  Sender: FDA-Public Use
  Company Number: IT-ROCHE-1235047

PATIENT

DRUGS (6)
  1. RITUXIMAB. [Suspect]
     Active Substance: RITUXIMAB
     Dosage: SUBSEQUENT?CYCLES UNTIL THE 6TH CYCLE
     Route: 042
  2. CHLORAMBUCIL [Suspect]
     Active Substance: CHLORAMBUCIL
     Dosage: FOR 8 CYCLES
     Route: 065
  3. RITUXIMAB. [Suspect]
     Active Substance: RITUXIMAB
     Dosage: SUBSEQUENT 5 CYCLES
     Route: 042
  4. RITUXIMAB. [Suspect]
     Active Substance: RITUXIMAB
     Indication: CHRONIC LYMPHOCYTIC LEUKAEMIA
     Dosage: DAY 1
     Route: 042
  5. CHLORAMBUCIL [Suspect]
     Active Substance: CHLORAMBUCIL
     Indication: CHRONIC LYMPHOCYTIC LEUKAEMIA
     Dosage: 1 MG/KG FOR EACH CYCLE EVERY 28 DAYS ORAL ADMINISTERED AT A STANDARD DAILY DOSE OF 10 MG STARTING FR
     Route: 048
  6. ACETAMINOPHEN. [Concomitant]
     Active Substance: ACETAMINOPHEN
     Dosage: 650-1000 MG
     Route: 048

REACTIONS (9)
  - Thrombocytopenia [Unknown]
  - Autoimmune haemolytic anaemia [Unknown]
  - Vomiting [Recovered/Resolved]
  - Anaemia [Unknown]
  - Lung infection [Unknown]
  - Infusion related reaction [Unknown]
  - Infection [Unknown]
  - Neutropenia [Unknown]
  - Nausea [Unknown]
